FAERS Safety Report 14413380 (Version 1)
Quarter: 2018Q1

REPORT INFORMATION
  Report Type: Spontaneous
  Country: BE (occurrence: BE)
  Receive Date: 20180119
  Receipt Date: 20180119
  Transmission Date: 20180509
  Serious: Yes (Other)
  Sender: FDA-Public Use
  Company Number: BE-GEHC-2018CSU000201

PATIENT

DRUGS (1)
  1. GADOLINIUM (UNSPECIFIED) [Suspect]
     Active Substance: GADOLINIUM
     Indication: HEREDITARY DISORDER
     Dosage: GREATER THAN 20 ADMINISTRATIONS
     Route: 065

REACTIONS (1)
  - Contrast media deposition [Unknown]
